FAERS Safety Report 4817314-3 (Version None)
Quarter: 2005Q4

REPORT INFORMATION
  Report Type: 
  Country: None (occurrence: None)
  Receive Date: 20051101
  Receipt Date: 20050928
  Transmission Date: 20060501
  Serious: Yes (Hospitalization)
  Sender: FDA-Public Use
  Company Number: PHBS2005JP14294

PATIENT
  Age: 54 Year
  Sex: Male

DRUGS (7)
  1. COLCHICINE [Suspect]
     Indication: BEHCET'S SYNDROME
     Dosage: 0.5 MG/D
     Route: 065
  2. COLCHICINE [Suspect]
     Dosage: 1 MG/D
  3. COLCHICINE [Suspect]
     Route: 065
  4. COLCHICINE [Suspect]
     Dosage: 0.5 MG/D
     Route: 065
  5. NEORAL [Suspect]
     Indication: BEHCET'S SYNDROME
     Dosage: 150 MG/D
     Route: 048
  6. NEORAL [Suspect]
     Route: 048
  7. NEORAL [Suspect]
     Dosage: 150 MG/D
     Route: 048
     Dates: end: 20040101

REACTIONS (9)
  - BLOOD CREATINE PHOSPHOKINASE INCREASED [None]
  - BLOOD CREATININE INCREASED [None]
  - BLOOD UREA INCREASED [None]
  - CREATININE RENAL CLEARANCE DECREASED [None]
  - KIDNEY FIBROSIS [None]
  - NEPHROPATHY TOXIC [None]
  - PROTEINURIA [None]
  - RENAL AMYLOIDOSIS [None]
  - RHABDOMYOLYSIS [None]
